FAERS Safety Report 21702475 (Version 1)
Quarter: 2022Q4

REPORT INFORMATION
  Report Type: Report from Study
  Country: RU (occurrence: RU)
  Receive Date: 20221208
  Receipt Date: 20221208
  Transmission Date: 20230113
  Serious: Yes (Hospitalization, Other)
  Sender: FDA-Public Use
  Company Number: RU-JNJFOC-20221203189

PATIENT

DRUGS (12)
  1. DARATUMUMAB [Suspect]
     Active Substance: DARATUMUMAB
     Indication: Acute myeloid leukaemia
     Dosage: ON DAY -7 IN 17 CASES AND IN 3 CASES IN CYTOREDUCTIVE PROPHASE ON DAYS -17
     Route: 041
  2. VELCADE [Suspect]
     Active Substance: BORTEZOMIB
     Indication: Prophylaxis against graft versus host disease
     Dosage: ON DAYS -5, -2, +2, AND +5
     Route: 058
  3. VENETOCLAX [Suspect]
     Active Substance: VENETOCLAX
     Indication: Acute myeloid leukaemia
     Dosage: 300 MG/M2/DAY PER OS ON DAYS -6 TO -2, AND PATIENTS  WHO RECEIVED FLA CYTOREDUCTION RECEIVED VENETO
     Route: 065
  4. FLUDARABINE [Suspect]
     Active Substance: FLUDARABINE PHOSPHATE
     Indication: Chemotherapy
     Dosage: ON DAYS +1 TO +5
     Route: 065
  5. CYTARABINE [Suspect]
     Active Substance: CYTARABINE
     Indication: Chemotherapy
     Dosage: ON DAYS +1 TO +5
     Route: 065
  6. ETOPOSIDE [Suspect]
     Active Substance: ETOPOSIDE
     Indication: Chemotherapy
     Route: 065
  7. TREOSULFAN [Suspect]
     Active Substance: TREOSULFAN
     Indication: Chemotherapy
     Route: 065
  8. THIOTEPA [Suspect]
     Active Substance: THIOTEPA
     Indication: Chemotherapy
     Route: 065
  9. TOCILIZUMAB [Suspect]
     Active Substance: TOCILIZUMAB
     Indication: Prophylaxis against graft versus host disease
     Dosage: ON DAY -1
     Route: 065
  10. ABATACEPT [Suspect]
     Active Substance: ABATACEPT
     Indication: Prophylaxis against graft versus host disease
     Dosage: ON DAYS -1, +7, +14, AND +28
     Route: 065
  11. PLERIXAFOR [Suspect]
     Active Substance: PLERIXAFOR
     Indication: Haematopoietic stem cell mobilisation
     Dosage: SUBCUTANEOUSLY AT A DOSE OF 240 MCG/KG/DAY FOR THREE INJECTIONS ON DAYS -6 TO -4
     Route: 058
  12. RITUXIMAB [Suspect]
     Active Substance: RITUXIMAB
     Indication: Prophylaxis against graft versus host disease
     Route: 065

REACTIONS (11)
  - Angioedema [Unknown]
  - Infusion related reaction [Unknown]
  - Sepsis [Unknown]
  - Pneumonia [Unknown]
  - Intensive care [Unknown]
  - Neurotoxicity [Unknown]
  - Mucosal inflammation [Unknown]
  - Arthropathy [Unknown]
  - Off label use [Unknown]
  - Off label use [Unknown]
  - Haemodynamic instability [Unknown]
